FAERS Safety Report 26215220 (Version 1)
Quarter: 2025Q4

REPORT INFORMATION
  Report Type: Spontaneous
  Country: GB (occurrence: GB)
  Receive Date: 20251230
  Receipt Date: 20251230
  Transmission Date: 20260117
  Serious: Yes (Death, Other)
  Sender: ABBVIE
  Company Number: None

PATIENT
  Age: 76 Year
  Sex: Male
  Weight: 80 kg

DRUGS (1)
  1. VENETOCLAX [Suspect]
     Active Substance: VENETOCLAX
     Indication: Plasma cell leukaemia
     Route: 048
     Dates: start: 20251223

REACTIONS (3)
  - Vomiting [Fatal]
  - Dyspnoea [Unknown]
  - Plasma cell leukaemia [Fatal]

NARRATIVE: CASE EVENT DATE: 20251201
